FAERS Safety Report 4644348-4 (Version None)
Quarter: 2005Q2

REPORT INFORMATION
  Report Type: 
  Country: None (occurrence: None)
  Receive Date: 20050422
  Receipt Date: 20050412
  Transmission Date: 20051028
  Serious: Yes (Death, Hospitalization)
  Sender: FDA-Public Use
  Company Number: PK-2005-004412

PATIENT
  Age: 47 Year
  Sex: Female
  Weight: 52 kg

DRUGS (6)
  1. ULTRAVIST 370 [Suspect]
     Dosage: 25 ML, 1 DOSE, INTRAVENOUS
     Route: 042
     Dates: start: 20050303, end: 20050303
  2. SOLU0CORTEF (HYDROCORTISONE SODIUM SUCCINATE) [Concomitant]
  3. PHENOXYENAZAMINE (PHENOXYENAZAMINE) [Concomitant]
  4. ZOFRAN [Concomitant]
  5. OMEPRAZOLE [Concomitant]
  6. ONDASETRON (ONDASTERON) [Concomitant]

REACTIONS (3)
  - BLOOD PRESSURE IMMEASURABLE [None]
  - PULSE ABSENT [None]
  - RESPIRATORY ARREST [None]
